FAERS Safety Report 19097264 (Version 2)
Quarter: 2024Q2

REPORT INFORMATION
  Report Type: Spontaneous
  Country: US (occurrence: US)
  Receive Date: 20210406
  Receipt Date: 20240527
  Transmission Date: 20240716
  Serious: No
  Sender: FDA-Public Use
  Company Number: US-GSKCCFUS-CASE-01016457_AE-60334

PATIENT
  Sex: Female

DRUGS (2)
  1. VENTOLIN HFA [Suspect]
     Active Substance: ALBUTEROL SULFATE
     Indication: Product used for unknown indication
     Dosage: UNK
     Route: 055
  2. ADVAIR HFA [Suspect]
     Active Substance: FLUTICASONE PROPIONATE\SALMETEROL XINAFOATE
     Indication: Product used for unknown indication
     Dosage: UNK

REACTIONS (8)
  - Asthma [Unknown]
  - Panic attack [Unknown]
  - Anxiety [Unknown]
  - Arthritis [Unknown]
  - Wrong technique in device usage process [Unknown]
  - Product packaging difficult to open [Unknown]
  - Drug ineffective [Unknown]
  - Incorrect dose administered [Unknown]
